FAERS Safety Report 15612898 (Version 1)
Quarter: 2018Q4

REPORT INFORMATION
  Report Type: Spontaneous
  Country: BE (occurrence: BE)
  Receive Date: 20181113
  Receipt Date: 20181113
  Transmission Date: 20190205
  Serious: Yes (Other)
  Sender: FDA-Public Use
  Company Number: BE-JNJFOC-20181105903

PATIENT
  Sex: Female

DRUGS (4)
  1. HALDOL DECANOAS [Suspect]
     Active Substance: HALOPERIDOL DECANOATE
     Indication: SCHIZOPHRENIA
     Route: 030
  2. HALDOL DECANOAS [Suspect]
     Active Substance: HALOPERIDOL DECANOATE
     Indication: SCHIZOPHRENIA
     Route: 030
  3. KEMADRIN [Concomitant]
     Active Substance: PROCYCLIDINE HYDROCHLORIDE
     Route: 065
  4. HALDOL DECANOAS [Suspect]
     Active Substance: HALOPERIDOL DECANOATE
     Indication: SCHIZOPHRENIA
     Route: 030

REACTIONS (5)
  - Obstruction gastric [Unknown]
  - Swelling face [Unknown]
  - Hypersensitivity [Unknown]
  - Urticaria [Unknown]
  - Alopecia [Unknown]
